FAERS Safety Report 6650027-4 (Version None)
Quarter: 2010Q1

REPORT INFORMATION
  Report Type: 
  Country: None (occurrence: None)
  Receive Date: 20100325
  Receipt Date: 20100319
  Transmission Date: 20100710
  Serious: Yes (Life-Threatening, Hospitalization, Other)
  Sender: FDA-Public Use
  Company Number: JP-ELI_LILLY_AND_COMPANY-JP201001000028

PATIENT
  Sex: Male
  Weight: 55 kg

DRUGS (13)
  1. HUMALOG [Suspect]
     Indication: TYPE 1 DIABETES MELLITUS
     Dosage: 6 IU, 3/D
     Route: 058
     Dates: start: 20071001, end: 20080301
  2. HUMALOG [Suspect]
     Dosage: 8 IU, 3/D
     Route: 058
     Dates: start: 20080301, end: 20091215
  3. HUMALOG [Suspect]
     Indication: TYPE 1 DIABETES MELLITUS
     Dosage: UNK, UNK
     Dates: start: 20071001, end: 20080310
  4. HUMULIN N [Suspect]
     Indication: TYPE 1 DIABETES MELLITUS
     Dosage: 8 IU, DAILY (1/D)
     Route: 058
     Dates: start: 20070420, end: 20071001
  5. HUMULIN R [Suspect]
     Indication: TYPE 1 DIABETES MELLITUS
     Dosage: 15 IU, 3/D
     Route: 058
     Dates: start: 20070420, end: 20071001
  6. LEVEMIR [Concomitant]
     Indication: TYPE 1 DIABETES MELLITUS
     Dosage: 12 D/F, UNK
     Route: 058
     Dates: start: 20080310, end: 20091215
  7. MIGLITOL [Concomitant]
     Indication: TYPE 1 DIABETES MELLITUS
     Dosage: 15 MG, 3/D
     Route: 048
     Dates: start: 20091008, end: 20091215
  8. GLUCOBAY [Concomitant]
     Indication: TYPE 1 DIABETES MELLITUS
     Dosage: 3 D/F, 3/D
     Route: 048
     Dates: start: 20090122, end: 20091007
  9. MICARDIS [Concomitant]
     Indication: ESSENTIAL HYPERTENSION
     Dosage: UNK, UNK
     Route: 048
     Dates: start: 20071001, end: 20091215
  10. ADALAT [Concomitant]
     Indication: ESSENTIAL HYPERTENSION
     Route: 048
     Dates: start: 20091220
  11. FAMOTIDINE [Concomitant]
     Indication: GASTRIC ULCER
     Route: 048
     Dates: start: 20070101, end: 20091215
  12. PARIET [Concomitant]
     Indication: GASTRIC ULCER
     Route: 048
     Dates: start: 20091220
  13. LIVALO [Concomitant]
     Indication: HYPERLIPIDAEMIA
     Route: 048
     Dates: start: 20090521, end: 20091205

REACTIONS (7)
  - ANTI-INSULIN ANTIBODY POSITIVE [None]
  - BLOOD GLUCOSE INCREASED [None]
  - CATARACT [None]
  - DIABETIC KETOACIDOSIS [None]
  - DIABETIC RETINOPATHY [None]
  - HYPERGLYCAEMIA [None]
  - HYPOGLYCAEMIA [None]
